FAERS Safety Report 17193630 (Version 1)
Quarter: 2019Q4

REPORT INFORMATION
  Report Type: Spontaneous
  Country: US (occurrence: US)
  Receive Date: 20191223
  Receipt Date: 20191223
  Transmission Date: 20200122
  Serious: Yes (Other)
  Sender: FDA-Public Use
  Company Number: US-JNJFOC-20191228773

PATIENT
  Sex: Male
  Weight: 126.67 kg

DRUGS (4)
  1. METOPROLOL                         /00376902/ [Concomitant]
     Active Substance: METOPROLOL TARTRATE
  2. ASPRIN [Suspect]
     Active Substance: ASPIRIN
     Dates: start: 1981
  3. XARELTO [Suspect]
     Active Substance: RIVAROXABAN
     Indication: CEREBROVASCULAR ACCIDENT PROPHYLAXIS
  4. XARELTO [Suspect]
     Active Substance: RIVAROXABAN
     Indication: ATRIAL FIBRILLATION
     Route: 048

REACTIONS (5)
  - Dupuytren^s contracture [Unknown]
  - Ear haemorrhage [Unknown]
  - Contusion [Unknown]
  - Blindness transient [Unknown]
  - Macular degeneration [Unknown]
